FAERS Safety Report 6394848-4 (Version None)
Quarter: 2009Q4

REPORT INFORMATION
  Report Type: 
  Country: None (occurrence: None)
  Receive Date: 20091009
  Receipt Date: 20090925
  Transmission Date: 20100525
  Serious: Yes (Hospitalization, Other)
  Sender: FDA-Public Use
  Company Number: PHEH2009US10897

PATIENT
  Sex: Female
  Weight: 48.98 kg

DRUGS (1)
  1. RECLAST [Suspect]
     Indication: OSTEOPOROSIS
     Dosage: 5 MG, OVER 30 MINUTESUNK
     Route: 042
     Dates: start: 20090820

REACTIONS (14)
  - BLOOD GLUCOSE INCREASED [None]
  - BLOOD POTASSIUM DECREASED [None]
  - CHEST PAIN [None]
  - ELECTROCARDIOGRAM ABNORMAL [None]
  - FEELING COLD [None]
  - HYPERHIDROSIS [None]
  - HYPOVENTILATION [None]
  - MIGRAINE [None]
  - MUSCULOSKELETAL CHEST PAIN [None]
  - MYALGIA [None]
  - OROPHARYNGEAL PAIN [None]
  - PERICARDITIS [None]
  - SNEEZING [None]
  - WHITE BLOOD CELL COUNT INCREASED [None]
